FAERS Safety Report 6203133-2 (Version None)
Quarter: 2009Q2

REPORT INFORMATION
  Report Type: 
  Country: None (occurrence: None)
  Receive Date: 20090522
  Receipt Date: 20090522
  Transmission Date: 20091009
  Serious: Yes (Hospitalization)
  Sender: FDA-Public Use
  Company Number: None

PATIENT
  Age: 61 Year
  Sex: Female

DRUGS (9)
  1. VANCOMYCIN HCL [Suspect]
     Indication: PNEUMONIA
     Dosage: 1G IV EVERY 12 HOURS
     Route: 042
     Dates: start: 20090213, end: 20090226
  2. ZITHROMAX [Suspect]
     Indication: PNEUMONIA
     Dosage: 250MG PO DAILY
     Route: 048
     Dates: start: 20090208, end: 20090213
  3. LOVENOX [Concomitant]
  4. ARIXTRA [Concomitant]
  5. ARGATROBAN [Concomitant]
  6. LANTUS [Concomitant]
  7. EFFEXOR XR [Concomitant]
  8. DEPAKENE [Concomitant]
  9. LISINOPRIL [Concomitant]

REACTIONS (2)
  - DRUG INEFFECTIVE [None]
  - PLATELET COUNT DECREASED [None]
